FAERS Safety Report 7830500-3 (Version None)
Quarter: 2011Q4

REPORT INFORMATION
  Report Type: 
  Country: None (occurrence: None)
  Receive Date: 20111021
  Receipt Date: 20111014
  Transmission Date: 20120403
  Serious: Yes (Other)
  Sender: FDA-Public Use
  Company Number: JP-ASTRAZENECA-2011SE62516

PATIENT
  Age: 78 Year
  Sex: Male

DRUGS (2)
  1. FOSCAVIR [Suspect]
     Indication: CYTOMEGALOVIRUS VIRAEMIA
     Dosage: 24 MG/ML
     Route: 041
  2. CYCLOSPORINE [Concomitant]
     Route: 042

REACTIONS (1)
  - RENAL FAILURE ACUTE [None]
